FAERS Safety Report 4489609-7 (Version None)
Quarter: 2004Q4

REPORT INFORMATION
  Report Type: 
  Country: None (occurrence: None)
  Receive Date: 20041101
  Receipt Date: 20041014
  Transmission Date: 20050328
  Serious: Yes (Hospitalization)
  Sender: FDA-Public Use
  Company Number: PHBS2004JP13804

PATIENT
  Age: 75 Year
  Sex: Female

DRUGS (6)
  1. DIOVAN [Suspect]
     Dosage: 80 MG, QD
     Dates: start: 20041006, end: 20041006
  2. EVISTA [Suspect]
     Dates: start: 20040701
  3. RIZE [Concomitant]
  4. CHOUTOUSAN [Concomitant]
     Indication: HEADACHE
     Dosage: 2.5 G, BID
     Dates: end: 20041006
  5. TOCOPHEROL CONCENTRATE CAP [Concomitant]
  6. HALCION [Concomitant]

REACTIONS (9)
  - BLOOD CREATINE PHOSPHOKINASE INCREASED [None]
  - BLOOD PRESSURE DECREASED [None]
  - COMA [None]
  - HEPATIC ENZYME INCREASED [None]
  - HYPOKALAEMIA [None]
  - HYPONATRAEMIA [None]
  - MALAISE [None]
  - MUSCLE RIGIDITY [None]
  - PYREXIA [None]
